FAERS Safety Report 24613377 (Version 1)
Quarter: 2024Q4

REPORT INFORMATION
  Report Type: Spontaneous
  Country: JP (occurrence: JP)
  Receive Date: 20241113
  Receipt Date: 20241113
  Transmission Date: 20250115
  Serious: Yes (Other)
  Sender: GILEAD
  Company Number: JP-GILEAD-2024-0693378

PATIENT
  Age: 52 Year
  Sex: Male

DRUGS (1)
  1. YESCARTA [Suspect]
     Active Substance: AXICABTAGENE CILOLEUCEL
     Indication: Diffuse large B-cell lymphoma recurrent
     Dosage: UNK
     Route: 065

REACTIONS (2)
  - Bronchopulmonary aspergillosis [Not Recovered/Not Resolved]
  - Hypogammaglobulinaemia [Unknown]
